FAERS Safety Report 9468084 (Version 1)
Quarter: 2013Q3

REPORT INFORMATION
  Report Type: Spontaneous
  Country: US (occurrence: US)
  Receive Date: 20130821
  Receipt Date: 20130821
  Transmission Date: 20140515
  Serious: Yes (Congenital Anomaly)
  Sender: FDA-Public Use
  Company Number: US-ELI_LILLY_AND_COMPANY-US201308004496

PATIENT
  Sex: 0

DRUGS (2)
  1. CYMBALTA [Suspect]
     Dosage: UNK, UNKNOWN
     Route: 065
  2. CYMBALTA [Suspect]
     Dosage: UNK, UNKNOWN
     Route: 065

REACTIONS (4)
  - Atrial septal defect [Unknown]
  - Ventricular septal defect [Unknown]
  - Hypoplastic left heart syndrome [Unknown]
  - Foetal exposure during pregnancy [Recovered/Resolved]
